FAERS Safety Report 7407307-4 (Version None)
Quarter: 2011Q2

REPORT INFORMATION
  Report Type: 
  Country: None (occurrence: None)
  Receive Date: 20110411
  Receipt Date: 20110330
  Transmission Date: 20111010
  Serious: Yes (Hospitalization)
  Sender: FDA-Public Use
  Company Number: PHHY2011ES27416

PATIENT
  Age: 63 Year
  Sex: Male

DRUGS (13)
  1. MYFORTIC [Suspect]
     Indication: SCLERODERMA
     Dates: end: 20110105
  2. VITAMIN B6 [Concomitant]
  3. IBUPROFEN [Concomitant]
  4. PARACETAMOL [Concomitant]
  5. AZATHIOPRINE [Concomitant]
  6. HYDROXYCHLOROQUINE SULFATE [Concomitant]
     Indication: SCLERODERMA
     Dosage: 200 MG
     Route: 048
     Dates: end: 20110105
  7. OMEPRAZOLE [Concomitant]
  8. ASPIRIN [Concomitant]
  9. ACETYLCYSTEINE [Concomitant]
  10. GABAPENTIN [Concomitant]
  11. SILDENAFIL [Concomitant]
  12. VITAMIN B1 TAB [Concomitant]
  13. VITAMIN B-12 [Concomitant]

REACTIONS (8)
  - NON-HODGKIN'S LYMPHOMA [None]
  - DECREASED APPETITE [None]
  - WEIGHT DECREASED [None]
  - LUNG INFILTRATION [None]
  - ARTHRALGIA [None]
  - IMMUNE RECONSTITUTION SYNDROME [None]
  - PLEURAL EFFUSION [None]
  - C-REACTIVE PROTEIN INCREASED [None]
